FAERS Safety Report 5317818-3 (Version None)
Quarter: 2007Q2

REPORT INFORMATION
  Report Type: 
  Country: None (occurrence: None)
  Receive Date: 20070502
  Receipt Date: 20070502
  Transmission Date: 20071010
  Serious: No
  Sender: FDA-Public Use
  Company Number: None

PATIENT
  Age: 54 Year
  Sex: Female
  Weight: 55.3388 kg

DRUGS (1)
  1. CAPZASIN       CHATTEM, INC. [Suspect]
     Indication: FIBROMYALGIA
     Dosage: TABLESPOON OR SO    ONCE
     Dates: start: 20070430, end: 20070430

REACTIONS (3)
  - ERYTHEMA [None]
  - SKIN BURNING SENSATION [None]
  - THERMAL BURN [None]
